FAERS Safety Report 12254163 (Version 12)
Quarter: 2019Q4

REPORT INFORMATION
  Report Type: Report from Study
  Country: US (occurrence: US)
  Receive Date: 20160411
  Receipt Date: 20191120
  Transmission Date: 20200122
  Serious: Yes (Other)
  Sender: FDA-Public Use
  Company Number: US-SA-2016SA068820

PATIENT
  Age: 54 Year
  Sex: Female

DRUGS (6)
  1. TYSABRI [Suspect]
     Active Substance: NATALIZUMAB
     Indication: MULTIPLE SCLEROSIS
     Dosage: UNK UNK, UNK
     Route: 065
  2. NEURONTIN [Concomitant]
     Active Substance: GABAPENTIN
     Indication: SWELLING
     Dosage: 300 MG,UNK
     Route: 065
  3. ALEMTUZUMAB [Suspect]
     Active Substance: ALEMTUZUMAB
     Indication: MULTIPLE SCLEROSIS
     Dosage: 12 MG,QD
     Route: 041
     Dates: start: 20160314, end: 20160318
  4. NEURONTIN [Concomitant]
     Active Substance: GABAPENTIN
     Indication: PAIN
     Dosage: 1600 MG,UNK
  5. ACICLOVIR [Concomitant]
     Active Substance: ACYCLOVIR
     Dosage: UNK, UNK
     Route: 065
     Dates: start: 20160307
  6. OCREVUS [Suspect]
     Active Substance: OCRELIZUMAB
     Dosage: 1 DF, UNK
     Route: 065

REACTIONS (40)
  - Memory impairment [Unknown]
  - Pain [Unknown]
  - Anaemia [Unknown]
  - Malaise [Not Recovered/Not Resolved]
  - Drug monitoring procedure not performed [Not Recovered/Not Resolved]
  - Hepatic failure [Unknown]
  - Dysuria [Recovered/Resolved]
  - Hypoaesthesia [Unknown]
  - Night sweats [Unknown]
  - Upper respiratory tract congestion [Not Recovered/Not Resolved]
  - Autoimmune hepatitis [Recovered/Resolved]
  - Vision blurred [Not Recovered/Not Resolved]
  - Erythema [Not Recovered/Not Resolved]
  - Peripheral swelling [Unknown]
  - Unevaluable event [Unknown]
  - Headache [Not Recovered/Not Resolved]
  - Cough [Not Recovered/Not Resolved]
  - Vascular device user [Unknown]
  - Dysstasia [Not Recovered/Not Resolved]
  - Condition aggravated [Unknown]
  - Constipation [Not Recovered/Not Resolved]
  - Upper respiratory tract infection [Not Recovered/Not Resolved]
  - Pulmonary mass [Unknown]
  - Fluid retention [Not Recovered/Not Resolved]
  - Weight increased [Not Recovered/Not Resolved]
  - Dysphonia [Unknown]
  - Cognitive disorder [Unknown]
  - Swelling [Not Recovered/Not Resolved]
  - Palpitations [Not Recovered/Not Resolved]
  - Feeling cold [Unknown]
  - Chest discomfort [Not Recovered/Not Resolved]
  - Device issue [Unknown]
  - Thyroid disorder [Unknown]
  - Unevaluable event [Not Recovered/Not Resolved]
  - Unevaluable event [Recovered/Resolved]
  - Skin discolouration [Unknown]
  - Gait disturbance [Not Recovered/Not Resolved]
  - Oropharyngeal pain [Not Recovered/Not Resolved]
  - Sneezing [Unknown]
  - Dizziness [Not Recovered/Not Resolved]

NARRATIVE: CASE EVENT DATE: 2016
